FAERS Safety Report 6587927-X (Version None)
Quarter: 2010Q1

REPORT INFORMATION
  Report Type: 
  Country: None (occurrence: None)
  Receive Date: 20100218
  Receipt Date: 20100208
  Transmission Date: 20100710
  Serious: Yes (Hospitalization)
  Sender: FDA-Public Use
  Company Number: JP-ELI_LILLY_AND_COMPANY-JP201001006283

PATIENT
  Age: 19 Year
  Sex: Female

DRUGS (4)
  1. ZYPREXA [Suspect]
     Indication: HALLUCINATION
     Dosage: 10 MG, DAILY (1/D)
     Route: 048
     Dates: start: 20060101, end: 20100101
  2. SELENICA-R [Concomitant]
     Dosage: 200 MG, UNKNOWN
     Route: 048
  3. ROHYPNOL [Concomitant]
     Dosage: UNK, UNKNOWN
     Route: 048
  4. AMOBAN [Concomitant]
     Dosage: UNK, UNKNOWN
     Route: 048

REACTIONS (2)
  - AGGRESSION [None]
  - EPILEPSY [None]
